FAERS Safety Report 10181370 (Version 2)
Quarter: 2014Q2

REPORT INFORMATION
  Report Type: Spontaneous
  Country: US (occurrence: US)
  Receive Date: 20140519
  Receipt Date: 20140519
  Transmission Date: 20141212
  Serious: No
  Sender: FDA-Public Use
  Company Number: US-AMGEN INC.-USASP2014026881

PATIENT
  Age: 84 Year
  Sex: Male

DRUGS (2)
  1. PROLIA [Suspect]
     Indication: OSTEOPOROSIS
     Route: 065
  2. COUMADIN                           /00014802/ [Concomitant]

REACTIONS (3)
  - Adverse drug reaction [Unknown]
  - Herpes zoster [Not Recovered/Not Resolved]
  - Back pain [Unknown]
